FAERS Safety Report 10527384 (Version 1)
Quarter: 2014Q4

REPORT INFORMATION
  Report Type: Spontaneous
  Country: US (occurrence: None)
  Receive Date: 20141017
  Receipt Date: 20141017
  Transmission Date: 20150528
  Serious: Yes (Hospitalization)
  Sender: FDA-Public Use
  Company Number: None

PATIENT
  Age: 16 Year
  Sex: Male
  Weight: 84.8 kg

DRUGS (6)
  1. VINCRISTINE SULFATE. [Suspect]
     Active Substance: VINCRISTINE SULFATE
     Dates: end: 20141003
  2. CYTARABINE. [Suspect]
     Active Substance: CYTARABINE
     Dates: end: 20140918
  3. METHOTREXATE [Suspect]
     Active Substance: METHOTREXATE
     Dates: end: 20140926
  4. PREDNISONE. [Suspect]
     Active Substance: PREDNISONE
     Dates: end: 20141004
  5. DAUNORUBICIN [Suspect]
     Active Substance: DAUNORUBICIN
     Dates: end: 20141003
  6. ONCASPAR [Suspect]
     Active Substance: PEGASPARGASE
     Dates: end: 20140922

REACTIONS (4)
  - Hyponatraemia [None]
  - Tumour lysis syndrome [None]
  - Hypotension [None]
  - Blood bilirubin increased [None]

NARRATIVE: CASE EVENT DATE: 20141005
